FAERS Safety Report 4448981-4 (Version None)
Quarter: 2004Q3

REPORT INFORMATION
  Report Type: 
  Country: None (occurrence: None)
  Receive Date: 20040910
  Receipt Date: 20040830
  Transmission Date: 20050211
  Serious: Yes (Hospitalization)
  Sender: FDA-Public Use
  Company Number: 2004060423

PATIENT
  Age: 74 Year
  Sex: Male
  Weight: 63.5036 kg

DRUGS (8)
  1. ZANTAC 75 [Suspect]
     Indication: CONSTIPATION
     Dosage: 1 TABLET ONCE DAILY, ORAL
     Route: 048
     Dates: start: 20040819, end: 20040824
  2. ASPIRIN [Concomitant]
  3. SOTALOL HCL [Concomitant]
  4. METOPROLOL TARTRATE [Concomitant]
  5. GLYBURIDE [Concomitant]
  6. METFORMIN HCL [Concomitant]
  7. ROSUVASTATIN (ROSUVASTATIN) [Concomitant]
  8. LEVOTHYROXINE SODIUM [Concomitant]

REACTIONS (3)
  - ATRIAL FIBRILLATION [None]
  - CONDITION AGGRAVATED [None]
  - FAECES DISCOLOURED [None]
